FAERS Safety Report 13228085 (Version 1)
Quarter: 2017Q1

REPORT INFORMATION
  Report Type: Spontaneous
  Country: US (occurrence: US)
  Receive Date: 20170213
  Receipt Date: 20170213
  Transmission Date: 20170428
  Serious: No
  Sender: FDA-Public Use
  Company Number: US-CIPLA LTD.-2016US07077

PATIENT

DRUGS (9)
  1. HYDROCODONE [Concomitant]
     Active Substance: HYDROCODONE
     Dosage: 7.5, ONE TO TWO PILLS, 4 TO 6 HOURS EVERY DAY
     Route: 065
  2. IC MELOXICAM [Concomitant]
     Dosage: 15 MG, QD
     Route: 065
  3. ANASPAZ [Concomitant]
     Active Substance: HYOSCYAMINE SULFATE
     Dosage: 0.125 MG, SIX OF THOSE A DAY
     Route: 065
  4. IC SERTRALINE HCI [Concomitant]
     Indication: DEPRESSION
     Dosage: 100 MG, QD
     Route: 065
  5. CELEBREX [Concomitant]
     Active Substance: CELECOXIB
     Indication: PAIN IN EXTREMITY
     Dosage: 200 MG, QD
     Route: 048
  6. IRON [Concomitant]
     Active Substance: IRON
     Dosage: 27 MG, QD
     Route: 065
  7. VITAMIN D [Concomitant]
     Active Substance: CHOLECALCIFEROL
     Dosage: 400 MG, QD
     Route: 065
  8. GABAPENTIN. [Suspect]
     Active Substance: GABAPENTIN
     Indication: PAIN IN EXTREMITY
     Dosage: 400 MG, QID
     Route: 048
     Dates: start: 20151010
  9. OSPHENA [Concomitant]
     Active Substance: OSPEMIFENE
     Dosage: 600 MG, QD
     Route: 065

REACTIONS (1)
  - Drug ineffective [Unknown]
